FAERS Safety Report 7676867-0 (Version None)
Quarter: 2011Q3

REPORT INFORMATION
  Report Type: 
  Country: None (occurrence: None)
  Receive Date: 20110810
  Receipt Date: 20110810
  Transmission Date: 20111222
  Serious: No
  Sender: FDA-Public Use
  Company Number: None

PATIENT
  Sex: Male
  Weight: 122.5 kg

DRUGS (5)
  1. RITUXIMAB (MOAB C2B8 ANTI CD20, CHIMERIC) [Suspect]
     Dosage: 875MG
  2. PREDNISONE [Suspect]
     Dosage: 400MG
  3. CYCLOPHOSPHAMIDE [Suspect]
     Dosage: 1725MG
  4. VINCRISTINE [Concomitant]
     Dosage: 2MG
  5. DOXIL [Suspect]
     Dosage: 90 MG

REACTIONS (2)
  - PANCYTOPENIA [None]
  - MYELODYSPLASTIC SYNDROME [None]
